FAERS Safety Report 6456758-3 (Version None)
Quarter: 2009Q4

REPORT INFORMATION
  Report Type: 
  Country: None (occurrence: None)
  Receive Date: 20091120
  Receipt Date: 20091106
  Transmission Date: 20100525
  Serious: Yes (Hospitalization)
  Sender: FDA-Public Use
  Company Number: ALK_01053_2009

PATIENT
  Sex: Male
  Weight: 172.3669 kg

DRUGS (3)
  1. VIVITROL [Suspect]
     Indication: ALCOHOLISM
     Dosage: (INTRAMUSCULAR)
     Route: 030
     Dates: start: 20091001
  2. ADIPEX [Concomitant]
  3. TRAZODONE [Concomitant]

REACTIONS (2)
  - DRUG INEFFECTIVE [None]
  - NEPHROLITHIASIS [None]
